FAERS Safety Report 4599612-4 (Version None)
Quarter: 2005Q1

REPORT INFORMATION
  Report Type: 
  Country: None (occurrence: None)
  Receive Date: 20050127
  Receipt Date: 20041019
  Transmission Date: 20050727
  Serious: No
  Sender: FDA-Public Use
  Company Number: USA041081591

PATIENT
  Age: 55 Year
  Sex: Female
  Weight: 70 kg

DRUGS (3)
  1. STRATTERA [Suspect]
     Indication: ATTENTION DEFICIT/HYPERACTIVITY DISORDER
     Dosage: 60 MG/ 1 DAY
     Dates: start: 20040914
  2. TRAZODONE HCL [Concomitant]
  3. ZOLOFT [Concomitant]

REACTIONS (4)
  - DRY MOUTH [None]
  - NAUSEA [None]
  - SLEEP DISORDER [None]
  - VISION BLURRED [None]
